FAERS Safety Report 23990190 (Version 1)
Quarter: 2024Q2

REPORT INFORMATION
  Report Type: Spontaneous
  Country: US (occurrence: US)
  Receive Date: 20240619
  Receipt Date: 20240619
  Transmission Date: 20240716
  Serious: No
  Sender: FDA-Public Use
  Company Number: US-HIKMA PHARMACEUTICALS USA INC.-US-H14001-23-67383

PATIENT
  Sex: Female

DRUGS (4)
  1. ICOSAPENT ETHYL [Suspect]
     Active Substance: ICOSAPENT ETHYL
     Indication: Blood cholesterol abnormal
     Dosage: 2 MILLIGRAM, BID
     Route: 048
  2. ICOSAPENT ETHYL [Suspect]
     Active Substance: ICOSAPENT ETHYL
     Dosage: 2 MILLIGRAM, BID
     Route: 048
  3. ICOSAPENT ETHYL [Suspect]
     Active Substance: ICOSAPENT ETHYL
     Dosage: 2 MILLIGRAM, BID
     Route: 048
  4. ICOSAPENT ETHYL [Suspect]
     Active Substance: ICOSAPENT ETHYL
     Dosage: 2 MILLIGRAM, BID
     Route: 048

REACTIONS (3)
  - Product dose omission issue [Unknown]
  - Product use issue [Unknown]
  - Poor quality product administered [Unknown]
